FAERS Safety Report 8645655 (Version 2)
Quarter: 2013Q3

REPORT INFORMATION
  Report Type: Report from Study
  Country: MX (occurrence: MX)
  Receive Date: 20120702
  Receipt Date: 20130913
  Transmission Date: 20140515
  Serious: Yes (Other)
  Sender: FDA-Public Use
  Company Number: PHHY2012MX056245

PATIENT
  Age: 82 Year
  Sex: Female

DRUGS (4)
  1. DIOVAN [Suspect]
     Indication: HYPERTENSION
     Dosage: 1 DF (160 MG), PER DAY
     Route: 048
     Dates: start: 20110225
  2. CRESTOR [Concomitant]
     Indication: BLOOD CHOLESTEROL
     Dosage: 1 DF, PER DAY
  3. SAXAGLIPTIN [Concomitant]
     Indication: DIABETES MELLITUS
  4. PLAVIX [Concomitant]
     Dosage: 1 DF, UNK

REACTIONS (1)
  - Arterial occlusive disease [Recovered/Resolved]
